FAERS Safety Report 9502417 (Version 4)
Quarter: 2017Q3

REPORT INFORMATION
  Report Type: Report from Study
  Country: AR (occurrence: AR)
  Receive Date: 20130906
  Receipt Date: 20170810
  Transmission Date: 20171128
  Serious: Yes (Hospitalization, Other)
  Sender: FDA-Public Use
  Company Number: AR-ROCHE-1269759

PATIENT
  Sex: Female

DRUGS (2)
  1. XOLAIR [Suspect]
     Active Substance: OMALIZUMAB
     Route: 058
     Dates: start: 2014, end: 2016
  2. XOLAIR [Suspect]
     Active Substance: OMALIZUMAB
     Indication: ASTHMA
     Dosage: RECEIVED AMPOULE AT A DOSE ONE EVERY 15 DAY
     Route: 058
     Dates: start: 2011

REACTIONS (4)
  - Asthmatic crisis [Not Recovered/Not Resolved]
  - General physical condition abnormal [Unknown]
  - Diabetes mellitus [Not Recovered/Not Resolved]
  - Asthma [Not Recovered/Not Resolved]

NARRATIVE: CASE EVENT DATE: 2013
